FAERS Safety Report 11905531 (Version 1)
Quarter: 2016Q1

REPORT INFORMATION
  Report Type: Other
  Country: IN (occurrence: IN)
  Receive Date: 20160109
  Receipt Date: 20160109
  Transmission Date: 20160526
  Serious: Yes (Hospitalization, Other)
  Sender: FDA-Public Use
  Company Number: IN-HETERO LABS LTD-1046306

PATIENT
  Age: 50 Year
  Sex: Male

DRUGS (2)
  1. TENOFOVIR [Suspect]
     Active Substance: TENOFOVIR
     Route: 065
  2. POTASSIUM CHLORIDE. [Concomitant]
     Active Substance: POTASSIUM CHLORIDE

REACTIONS (3)
  - Paralysis [Recovered/Resolved]
  - Hypokalaemia [Recovered/Resolved]
  - Fanconi syndrome [Recovered/Resolved]
